FAERS Safety Report 14078297 (Version 2)
Quarter: 2017Q4

REPORT INFORMATION
  Report Type: Spontaneous
  Country: GB (occurrence: GB)
  Receive Date: 20171012
  Receipt Date: 20171031
  Transmission Date: 20180321
  Serious: Yes (Other)
  Sender: FDA-Public Use
  Company Number: PHHY2017GB148393

PATIENT

DRUGS (1)
  1. EXJADE [Suspect]
     Active Substance: DEFERASIROX
     Indication: THALASSAEMIA
     Dosage: 1500 MG ESTIMATED AS 4MG PER KG
     Route: 065

REACTIONS (3)
  - Alanine aminotransferase increased [Unknown]
  - Hepatic cirrhosis [Unknown]
  - Hepatic lesion [Unknown]
